FAERS Safety Report 9331237 (Version 1)
Quarter: 2013Q2

REPORT INFORMATION
  Report Type: Spontaneous
  Country: US (occurrence: US)
  Receive Date: 20130605
  Receipt Date: 20130605
  Transmission Date: 20140414
  Serious: Yes (Hospitalization)
  Sender: FDA-Public Use
  Company Number: US-SANOFI-AVENTIS-2013SA056167

PATIENT
  Sex: Male

DRUGS (2)
  1. LANTUS [Suspect]
  2. APIDRA [Concomitant]

REACTIONS (1)
  - Lower limb fracture [Recovering/Resolving]
